FAERS Safety Report 8617513-9 (Version None)
Quarter: 2012Q3

REPORT INFORMATION
  Report Type: 
  Country: None (occurrence: None)
  Receive Date: 20120824
  Receipt Date: 20111104
  Transmission Date: 20120928
  Serious: No
  Sender: FDA-Public Use
  Company Number: US-ASTRAZENECA-2011SE66931

PATIENT
  Age: 53 Year
  Sex: Female
  Weight: 77.1 kg

DRUGS (20)
  1. TOPRAMAX [Concomitant]
     Indication: MOOD SWINGS
  2. TOPRAMAX [Concomitant]
     Indication: MIGRAINE
  3. NICOTINE [Concomitant]
     Indication: PAIN
  4. CYMBALTA [Concomitant]
     Indication: NEUROPATHY PERIPHERAL
  5. SYMBICORT [Suspect]
     Indication: ASTHMA
     Dosage: 160/4.5 2 PUFFS BID
     Route: 055
     Dates: start: 20110921
  6. DITROPAN [Concomitant]
  7. PREDNISONE TAB [Concomitant]
     Indication: HYPERSENSITIVITY
  8. VITAMIN TAB [Concomitant]
  9. TRAMADOL HCL [Concomitant]
  10. NITROSTAT [Concomitant]
  11. CYCLOBENZAPRINE [Concomitant]
  12. MULTIMINERAL SUPPLEMENTS [Concomitant]
  13. PLAVIX [Concomitant]
  14. FUROSEMIDE [Concomitant]
  15. DIPHENHYDRAMINE HYDROCHLORIDE [Concomitant]
     Indication: DIARRHOEA
  16. LEVOTHYROXINE SODIUM [Concomitant]
     Indication: THYROID DISORDER
  17. OMEPRAZOLE [Concomitant]
     Indication: GASTROOESOPHAGEAL REFLUX DISEASE
  18. RANOLAZINE [Concomitant]
     Indication: ANGIOPATHY
  19. ZETIA [Concomitant]
     Indication: BLOOD CHOLESTEROL
  20. ZOLMITRIPTAN [Concomitant]
     Indication: HEADACHE

REACTIONS (8)
  - DRY MOUTH [None]
  - NASAL DRYNESS [None]
  - POLYDIPSIA [None]
  - WEIGHT FLUCTUATION [None]
  - HYPOPNOEA [None]
  - OROPHARYNGEAL PAIN [None]
  - DRY EYE [None]
  - SINUS DISORDER [None]
